FAERS Safety Report 7047013-1 (Version None)
Quarter: 2010Q4

REPORT INFORMATION
  Report Type: 
  Country: None (occurrence: None)
  Receive Date: 20101015
  Receipt Date: 20101011
  Transmission Date: 20110411
  Serious: Yes (Death)
  Sender: FDA-Public Use
  Company Number: NL-ASTRAZENECA-2010SE47876

PATIENT
  Age: 55 Year
  Sex: Male

DRUGS (2)
  1. SEROQUEL [Suspect]
     Indication: HEAD DISCOMFORT
     Route: 048
     Dates: start: 20100910
  2. PAROXETINE HCL [Concomitant]
     Dosage: ONE TABLET ON WEDNESDAY AND ONE TABLET ON THURSDAY
     Dates: start: 20100928

REACTIONS (1)
  - COMPLETED SUICIDE [None]
